FAERS Safety Report 4565344-1 (Version None)
Quarter: 2005Q1

REPORT INFORMATION
  Report Type: 
  Country: None (occurrence: None)
  Receive Date: 20050126
  Receipt Date: 20050106
  Transmission Date: 20050727
  Serious: Yes (Death, Other)
  Sender: FDA-Public Use
  Company Number: GBS050116347

PATIENT
  Age: 46 Year
  Sex: Male

DRUGS (2)
  1. PROZAC [Suspect]
  2. TEMAZEPAM [Concomitant]

REACTIONS (2)
  - INJURY ASPHYXIATION [None]
  - SUICIDE ATTEMPT [None]
